FAERS Safety Report 15989397 (Version 1)
Quarter: 2019Q1

REPORT INFORMATION
  Report Type: Spontaneous
  Country: US (occurrence: US)
  Receive Date: 20190220
  Receipt Date: 20190220
  Transmission Date: 20190418
  Serious: Yes (Other)
  Sender: FDA-Public Use
  Company Number: None

PATIENT
  Age: 83 Year
  Sex: Female
  Weight: 69.3 kg

DRUGS (7)
  1. 10/05/18 LEVOFLOXACIN 500 MG SAME PRESCRIPTION. 10/24/18 [Suspect]
     Active Substance: LEVOFLOXACIN SODIUM
     Indication: BRONCHITIS
     Dosage: ?          QUANTITY:1 TABLET(S);?
     Route: 048
     Dates: start: 20181005, end: 20181024
  2. 10/05/18 LEVOFLOXACIN 500 MG SAME PRESCRIPTION. 10/24/18 [Suspect]
     Active Substance: LEVOFLOXACIN SODIUM
     Indication: SINUSITIS
     Dosage: ?          QUANTITY:1 TABLET(S);?
     Route: 048
     Dates: start: 20181005, end: 20181024
  3. OCCUVITE [Concomitant]
  4. VITAMIN B12 [Concomitant]
     Active Substance: CYANOCOBALAMIN
  5. XANAX [Concomitant]
     Active Substance: ALPRAZOLAM
  6. PROZAC (SAD) [Concomitant]
  7. VITAMIN C [Concomitant]
     Active Substance: ASCORBIC ACID

REACTIONS (6)
  - Arthralgia [None]
  - Musculoskeletal pain [None]
  - Ageusia [None]
  - Anosmia [None]
  - Pain in extremity [None]
  - Groin pain [None]

NARRATIVE: CASE EVENT DATE: 20181015
